FAERS Safety Report 8231627-7 (Version None)
Quarter: 2012Q1

REPORT INFORMATION
  Report Type: 
  Country: None (occurrence: None)
  Receive Date: 20120323
  Receipt Date: 20120313
  Transmission Date: 20120608
  Serious: Yes (Hospitalization)
  Sender: FDA-Public Use
  Company Number: CA-ELI_LILLY_AND_COMPANY-CA201203003976

PATIENT
  Age: 71 Year
  Sex: Female

DRUGS (9)
  1. POTASSIUM [Concomitant]
  2. ADVAIR DISKUS 100/50 [Concomitant]
  3. DAXAS [Concomitant]
  4. LEVOTHYROXINE SODIUM [Concomitant]
  5. FRAGMIN [Concomitant]
  6. FORTEO [Suspect]
     Indication: OSTEOPOROSIS
     Dosage: 20 UG, QD
     Route: 058
     Dates: start: 20110311
  7. IRON [Concomitant]
  8. OMEPRAZOLE [Concomitant]
  9. LOPERAMIDE [Concomitant]

REACTIONS (1)
  - HERNIA REPAIR [None]
